FAERS Safety Report 7061604-3 (Version None)
Quarter: 2010Q4

REPORT INFORMATION
  Report Type: 
  Country: None (occurrence: None)
  Receive Date: 20101026
  Receipt Date: 20101018
  Transmission Date: 20110411
  Serious: Yes (Hospitalization)
  Sender: FDA-Public Use
  Company Number: IT-BAXTER-2010BH026289

PATIENT
  Age: 52 Year
  Sex: Female

DRUGS (3)
  1. HOLOXAN BAXTER [Suspect]
     Indication: LEIOMYOSARCOMA
     Route: 042
     Dates: start: 20100719, end: 20100817
  2. UROMITEXAN BAXTER [Suspect]
     Indication: LEIOMYOSARCOMA
     Route: 042
     Dates: start: 20100719, end: 20100817
  3. DOXORUBICIN HCL [Suspect]
     Indication: LEIOMYOSARCOMA
     Route: 042
     Dates: start: 20100719, end: 20100809

REACTIONS (6)
  - CONJUNCTIVITIS [None]
  - DIARRHOEA [None]
  - HYPERGLYCAEMIA [None]
  - HYPERPYREXIA [None]
  - PNEUMONIA [None]
  - PULMONARY EMBOLISM [None]
